FAERS Safety Report 13876140 (Version 1)
Quarter: 2017Q3

REPORT INFORMATION
  Report Type: Spontaneous
  Country: US (occurrence: US)
  Receive Date: 20170817
  Receipt Date: 20170817
  Transmission Date: 20171127
  Serious: No
  Sender: FDA-Public Use
  Company Number: US-PFIZER INC-2017356450

PATIENT
  Age: 40 Year
  Sex: Female

DRUGS (1)
  1. EUCRISA [Suspect]
     Active Substance: CRISABOROLE
     Indication: SKIN DISORDER
     Dosage: UNK UNK, DAILY
     Route: 061

REACTIONS (2)
  - Application site pain [Recovered/Resolved]
  - Product use in unapproved indication [Unknown]
